FAERS Safety Report 21378940 (Version 2)
Quarter: 2022Q3

REPORT INFORMATION
  Report Type: Report from Study
  Country: US (occurrence: US)
  Receive Date: 20220927
  Receipt Date: 20220929
  Transmission Date: 20221027
  Serious: Yes (Hospitalization)
  Sender: FDA-Public Use
  Company Number: US-ABBVIE-4130289

PATIENT
  Sex: Female
  Weight: 81.646 kg

DRUGS (6)
  1. RINVOQ [Suspect]
     Active Substance: UPADACITINIB
     Indication: Rheumatoid arthritis
     Dosage: 15 MILLIGRAM
     Route: 048
     Dates: start: 201904, end: 20211022
  2. RINVOQ [Suspect]
     Active Substance: UPADACITINIB
     Indication: Rheumatoid arthritis
     Dosage: 15 MILLIGRAM
     Route: 048
     Dates: start: 202204, end: 20220927
  3. RINVOQ [Suspect]
     Active Substance: UPADACITINIB
     Indication: Rheumatoid arthritis
     Dosage: 15 MILLIGRAM
     Route: 048
     Dates: start: 20211031, end: 20211122
  4. ATORVASTATIN [Concomitant]
     Active Substance: ATORVASTATIN
     Indication: Product used for unknown indication
  5. LORETA [Concomitant]
     Indication: Product used for unknown indication
  6. Covid19 vaccine [Concomitant]
     Indication: COVID-19 immunisation
     Dosage: PFIZER - TWO SHOTS
     Route: 030
     Dates: start: 2021, end: 2021

REACTIONS (8)
  - Internal haemorrhage [Recovered/Resolved]
  - Rheumatoid arthritis [Recovered/Resolved]
  - Upper gastrointestinal haemorrhage [Recovered/Resolved]
  - Appendicitis perforated [Recovered/Resolved]
  - Post procedural infection [Recovered/Resolved]
  - Haemoglobin decreased [Recovered/Resolved]
  - Rheumatoid arthritis [Recovered/Resolved]
  - Fatigue [Recovered/Resolved]

NARRATIVE: CASE EVENT DATE: 20210101
